FAERS Safety Report 25783877 (Version 1)
Quarter: 2025Q3

REPORT INFORMATION
  Report Type: Report from Study
  Country: CA (occurrence: CA)
  Receive Date: 20250910
  Receipt Date: 20250910
  Transmission Date: 20251020
  Serious: Yes (Other)
  Sender: TEVA
  Company Number: CA-TEVA-VS-3369977

PATIENT
  Age: 54 Year
  Sex: Female
  Weight: 57 kg

DRUGS (1)
  1. CINQAIR [Suspect]
     Active Substance: RESLIZUMAB
     Indication: Asthma
     Route: 042

REACTIONS (4)
  - Graves^ disease [Unknown]
  - Hypertension [Unknown]
  - Eosinophilic bronchitis [Unknown]
  - Incorrect dose administered [Unknown]

NARRATIVE: CASE EVENT DATE: 20250805
